FAERS Safety Report 16323798 (Version 2)
Quarter: 2019Q2

REPORT INFORMATION
  Report Type: Other
  Country: JP (occurrence: JP)
  Receive Date: 20190517
  Receipt Date: 20190606
  Transmission Date: 20190711
  Serious: Yes (Hospitalization, Other)
  Sender: FDA-Public Use
  Company Number: JP-VISTAPHARM, INC.-VER201905-000207

PATIENT
  Age: 72 Year
  Sex: Male

DRUGS (4)
  1. CYCLOPHOSPHAMIDE. [Concomitant]
     Active Substance: CYCLOPHOSPHAMIDE
     Indication: TEMPORAL ARTERITIS
  2. CYCLOPHOSPHAMIDE. [Concomitant]
     Active Substance: CYCLOPHOSPHAMIDE
     Indication: ISCHAEMIC STROKE
     Dosage: 500 MG
  3. PREDNISOLONE. [Suspect]
     Active Substance: PREDNISOLONE
     Indication: ISCHAEMIC STROKE
     Dosage: 60 MG
  4. PREDNISOLONE. [Suspect]
     Active Substance: PREDNISOLONE
     Indication: TEMPORAL ARTERITIS

REACTIONS (4)
  - Condition aggravated [Recovered/Resolved]
  - Carotid intima-media thickness increased [Recovered/Resolved]
  - Ischaemic stroke [Recovered/Resolved]
  - Diastolic hypertension [Recovered/Resolved]
